FAERS Safety Report 10190098 (Version 1)
Quarter: 2014Q2

REPORT INFORMATION
  Report Type: Spontaneous
  Country: NO (occurrence: NO)
  Receive Date: 20140522
  Receipt Date: 20140522
  Transmission Date: 20141212
  Serious: Yes (Congenital Anomaly, Other)
  Sender: FDA-Public Use
  Company Number: NO-WATSON-2014-10228

PATIENT
  Sex: 0

DRUGS (1)
  1. VALPROIC ACID (UNKNOWN) [Suspect]
     Indication: EPILEPSY
     Dosage: UNK
     Route: 064

REACTIONS (2)
  - Spina bifida [Unknown]
  - Foetal exposure during pregnancy [Unknown]
